FAERS Safety Report 14784206 (Version 1)
Quarter: 2018Q2

REPORT INFORMATION
  Report Type: Spontaneous
  Country: DE (occurrence: DE)
  Receive Date: 20180420
  Receipt Date: 20180420
  Transmission Date: 20180711
  Serious: Yes (Other)
  Sender: FDA-Public Use
  Company Number: DE-TEVA-2018-DE-883133

PATIENT
  Age: 54 Year
  Sex: Male
  Weight: 89 kg

DRUGS (15)
  1. SULFAMETHOXAZOL/TRIMETHOPRIM [Concomitant]
     Active Substance: SULFAMETHOXAZOLE\TRIMETHOPRIM
  2. ROMIPLOSTIM [Concomitant]
     Active Substance: ROMIPLOSTIM
  3. PREDNISOLON TABLET [Suspect]
     Active Substance: PREDNISOLONE
     Dosage: 20 MILLIGRAM DAILY; 1-0-0-0
     Route: 048
  4. PANTOPRAZOL [Concomitant]
     Active Substance: PANTOPRAZOLE SODIUM
  5. SIMETICON [Concomitant]
  6. MAGNESIUM [Concomitant]
     Active Substance: MAGNESIUM
  7. BUDESONIDE. [Concomitant]
     Active Substance: BUDESONIDE
  8. METOPROLOL. [Concomitant]
     Active Substance: METOPROLOL
  9. LEVOTHYROXINE SODIUM. [Concomitant]
     Active Substance: LEVOTHYROXINE SODIUM
  10. TORASEMID [Concomitant]
     Active Substance: TORSEMIDE
  11. TACROLIMUS. [Concomitant]
     Active Substance: TACROLIMUS
  12. TAMSULOSIN [Concomitant]
     Active Substance: TAMSULOSIN
  13. ACICLOVIR [Concomitant]
     Active Substance: ACYCLOVIR
  14. POSACONAZOL [Concomitant]
     Active Substance: POSACONAZOLE
  15. POLYSTYROLSULFONAT [Concomitant]

REACTIONS (2)
  - Primary myelofibrosis [Unknown]
  - Hyperglycaemia [Unknown]
